FAERS Safety Report 11938053 (Version 6)
Quarter: 2016Q3

REPORT INFORMATION
  Report Type: Spontaneous
  Country: JP (occurrence: JP)
  Receive Date: 20160122
  Receipt Date: 20160801
  Transmission Date: 20161109
  Serious: Yes (Death, Hospitalization, Disabling)
  Sender: FDA-Public Use
  Company Number: JP-ABBVIE-16K-087-1542987-00

PATIENT
  Age: 58 Year
  Sex: Male
  Weight: 57.5 kg

DRUGS (8)
  1. HUMIRA [Suspect]
     Active Substance: ADALIMUMAB
     Route: 058
     Dates: start: 20150730, end: 20150903
  2. HUMIRA [Suspect]
     Active Substance: ADALIMUMAB
     Route: 058
     Dates: start: 20151224, end: 20160107
  3. HUMIRA [Suspect]
     Active Substance: ADALIMUMAB
     Indication: PSORIASIS
     Route: 058
     Dates: start: 20130305, end: 20140619
  4. HUMIRA [Suspect]
     Active Substance: ADALIMUMAB
     Route: 058
     Dates: start: 20151028, end: 20151223
  5. RHEUMATREX [Suspect]
     Active Substance: METHOTREXATE SODIUM
     Indication: ARTHRALGIA
     Route: 048
     Dates: start: 20151224, end: 20160112
  6. CALCIPOTRIOL HYDRATE/BETAMETHASONE DIPROPIONATE [Concomitant]
     Indication: PSORIASIS
     Route: 061
     Dates: start: 20150917, end: 20160112
  7. HUMIRA [Suspect]
     Active Substance: ADALIMUMAB
     Route: 058
     Dates: start: 20150917, end: 20151027
  8. HUMIRA [Suspect]
     Active Substance: ADALIMUMAB
     Route: 058
     Dates: start: 20140710, end: 20150618

REACTIONS (17)
  - Coagulopathy [Fatal]
  - Bone erosion [Not Recovered/Not Resolved]
  - Arthralgia [Unknown]
  - Subarachnoid haemorrhage [Fatal]
  - Mitral valve incompetence [Not Recovered/Not Resolved]
  - Endocarditis [Fatal]
  - Nasopharyngitis [Unknown]
  - Inguinal hernia [Recovered/Resolved]
  - Mitral valve prolapse [Not Recovered/Not Resolved]
  - Nasopharyngitis [Recovered/Resolved]
  - Cardiac murmur [Unknown]
  - Joint swelling [Unknown]
  - Immunodeficiency [Unknown]
  - Infective aneurysm [Fatal]
  - Rheumatoid factor positive [Unknown]
  - Impaired healing [Unknown]
  - Diverticulitis [Unknown]

NARRATIVE: CASE EVENT DATE: 20130920
